FAERS Safety Report 6643009-X (Version None)
Quarter: 2010Q1

REPORT INFORMATION
  Report Type: 
  Country: None (occurrence: None)
  Receive Date: 20100319
  Receipt Date: 20100309
  Transmission Date: 20100710
  Serious: Yes (Hospitalization)
  Sender: FDA-Public Use
  Company Number: B0626838A

PATIENT
  Sex: Male
  Weight: 54 kg

DRUGS (11)
  1. VALTREX [Suspect]
     Indication: HERPES ZOSTER
     Dosage: 3000MG PER DAY
     Route: 048
     Dates: start: 20100104, end: 20100108
  2. ZOVIRAX [Suspect]
     Indication: HERPES ZOSTER
     Dosage: 500MG PER DAY
     Route: 042
     Dates: start: 20100104, end: 20100108
  3. ALLOPURINOL [Concomitant]
     Dosage: 200MG PER DAY
     Route: 048
     Dates: end: 20100108
  4. HARNAL [Concomitant]
     Indication: DRUG USE FOR UNKNOWN INDICATION
     Dosage: .2MG PER DAY
     Route: 048
     Dates: end: 20100108
  5. URALYT [Concomitant]
     Dosage: 2U PER DAY
     Route: 048
     Dates: end: 20100108
  6. ACINON [Concomitant]
     Dosage: 150MG PER DAY
     Route: 048
  7. TROXSIN [Concomitant]
     Dosage: 300MG PER DAY
     Route: 048
     Dates: end: 20100108
  8. LOXONIN [Concomitant]
     Indication: PAIN
     Route: 050
     Dates: start: 20100104, end: 20100108
  9. CONIEL [Concomitant]
     Indication: HYPERTENSION
     Dosage: 4MG PER DAY
     Route: 050
     Dates: end: 20100109
  10. CONIEL [Concomitant]
     Route: 050
     Dates: start: 20100101
  11. UNKNOWN DRUG [Concomitant]
     Indication: DRUG USE FOR UNKNOWN INDICATION
     Dosage: 3U PER DAY
     Route: 050
     Dates: end: 20100108

REACTIONS (10)
  - DECREASED APPETITE [None]
  - DIARRHOEA [None]
  - DRUG LEVEL INCREASED [None]
  - FEELING ABNORMAL [None]
  - NAUSEA [None]
  - RASH GENERALISED [None]
  - RENAL FAILURE ACUTE [None]
  - URINARY RETENTION [None]
  - URINE OUTPUT DECREASED [None]
  - VOMITING [None]
